FAERS Safety Report 20860082 (Version 1)
Quarter: 2022Q2

REPORT INFORMATION
  Report Type: Report from Study
  Country: DE (occurrence: DE)
  Receive Date: 20220523
  Receipt Date: 20220523
  Transmission Date: 20220720
  Serious: Yes (Hospitalization, Other)
  Sender: FDA-Public Use
  Company Number: DE-ABBVIE-22K-062-4354236-00

PATIENT
  Sex: Female

DRUGS (18)
  1. HUMIRA [Suspect]
     Active Substance: ADALIMUMAB
     Indication: Rheumatoid arthritis
     Route: 058
     Dates: start: 201904, end: 20200310
  2. HUMIRA [Suspect]
     Active Substance: ADALIMUMAB
     Route: 058
     Dates: end: 202102
  3. HUMIRA [Suspect]
     Active Substance: ADALIMUMAB
     Route: 058
     Dates: end: 202205
  4. AMLODIPINE [Concomitant]
     Active Substance: AMLODIPINE BESYLATE
     Indication: Product used for unknown indication
  5. CANDESARTAN CILEXETIL [Concomitant]
     Active Substance: CANDESARTAN CILEXETIL
     Indication: Product used for unknown indication
  6. LEVOTHYROXINE SODIUM [Concomitant]
     Active Substance: LEVOTHYROXINE SODIUM
     Indication: Product used for unknown indication
  7. LEVETIRACETAM [Concomitant]
     Active Substance: LEVETIRACETAM
     Indication: Product used for unknown indication
  8. TORSEMIDE [Concomitant]
     Active Substance: TORSEMIDE
     Indication: Product used for unknown indication
  9. PREDNISOLONE [Concomitant]
     Active Substance: PREDNISOLONE
     Indication: Product used for unknown indication
     Route: 048
  10. SECUKINUMAB [Concomitant]
     Active Substance: SECUKINUMAB
     Indication: Product used for unknown indication
  11. URAPIDIL [Concomitant]
     Active Substance: URAPIDIL
     Indication: Product used for unknown indication
  12. NEPRESOL [Concomitant]
     Indication: Product used for unknown indication
  13. CEFUROXIME [Concomitant]
     Active Substance: CEFUROXIME
     Indication: Product used for unknown indication
  14. METAMIZOLE [Concomitant]
     Active Substance: METAMIZOLE
     Indication: Product used for unknown indication
  15. NOVAMINSULFONE [Concomitant]
     Indication: Pain
  16. BUPRENORPHINE [Concomitant]
     Active Substance: BUPRENORPHINE
     Indication: Pain
  17. MIRTAZAPINE [Concomitant]
     Active Substance: MIRTAZAPINE
     Indication: Pain
  18. OXYCODONE [Concomitant]
     Active Substance: OXYCODONE
     Indication: Pain

REACTIONS (33)
  - Epilepsy [Unknown]
  - Cerebral ventricular rupture [Unknown]
  - Cerebral haemorrhage [Recovered/Resolved with Sequelae]
  - Photophobia [Unknown]
  - Arterial spasm [Unknown]
  - Thrombophlebitis [Unknown]
  - Aphasia [Unknown]
  - Depression [Unknown]
  - Hypothyroidism [Unknown]
  - Vasculitis [Unknown]
  - Anisocoria [Unknown]
  - Arthropathy [Unknown]
  - Rotator cuff syndrome [Unknown]
  - Joint stiffness [Unknown]
  - Bursitis [Unknown]
  - Sacroiliitis [Unknown]
  - Soft tissue disorder [Unknown]
  - Osteoarthritis [Unknown]
  - Gait disturbance [Unknown]
  - Brain oedema [Unknown]
  - Hemiparesis [Unknown]
  - Stress [Unknown]
  - Diplopia [Recovered/Resolved]
  - Hyperaesthesia [Unknown]
  - Rheumatic disorder [Unknown]
  - Drug ineffective [Unknown]
  - Musculoskeletal pain [Unknown]
  - Arthralgia [Recovering/Resolving]
  - Hypersensitivity [Unknown]
  - Unevaluable event [Unknown]
  - Bronchitis [Unknown]
  - Musculoskeletal stiffness [Unknown]
  - Paraesthesia [Unknown]

NARRATIVE: CASE EVENT DATE: 20190101
